FAERS Safety Report 6234607-6 (Version None)
Quarter: 2009Q2

REPORT INFORMATION
  Report Type: 
  Country: None (occurrence: None)
  Receive Date: 20090615
  Receipt Date: 20090609
  Transmission Date: 20091009
  Serious: Yes (Death, Life-Threatening)
  Sender: FDA-Public Use
  Company Number: DE-WYE-G03820709

PATIENT
  Age: 77 Year
  Sex: Female

DRUGS (8)
  1. TYGACIL [Suspect]
     Indication: SOFT TISSUE INFECTION
     Dosage: 100 MG 1X PER 1 DAY INTRAVENOUS; 25 MG 2X PER 1 DAY, INTRAVENOUS; 50 MG 2X PER 1 DAY, INTRAVENOUS
     Route: 042
     Dates: start: 20090424, end: 20090424
  2. TYGACIL [Suspect]
     Indication: SOFT TISSUE INFECTION
     Dosage: 100 MG 1X PER 1 DAY INTRAVENOUS; 25 MG 2X PER 1 DAY, INTRAVENOUS; 50 MG 2X PER 1 DAY, INTRAVENOUS
     Route: 042
     Dates: start: 20090425, end: 20090502
  3. TYGACIL [Suspect]
     Indication: SOFT TISSUE INFECTION
     Dosage: 100 MG 1X PER 1 DAY INTRAVENOUS; 25 MG 2X PER 1 DAY, INTRAVENOUS; 50 MG 2X PER 1 DAY, INTRAVENOUS
     Route: 042
     Dates: start: 20090502, end: 20090508
  4. IMIPENEM (IMIPENEM) [Concomitant]
  5. CIPROFLOXACIN HCL [Concomitant]
  6. CUBICIN [Concomitant]
  7. ARTERENOL (NOREPINEPHRINE HYDROCHLORIDE) [Concomitant]
  8. SELENASE (SELENIDE SODIUM) [Concomitant]

REACTIONS (12)
  - ACTIVATED PARTIAL THROMBOPLASTIN TIME PROLONGED [None]
  - ALANINE AMINOTRANSFERASE INCREASED [None]
  - ASPARTATE AMINOTRANSFERASE INCREASED [None]
  - BLOOD BILIRUBIN INCREASED [None]
  - BLOOD UREA INCREASED [None]
  - CONDITION AGGRAVATED [None]
  - ENTEROCOCCAL BACTERAEMIA [None]
  - GAMMA-GLUTAMYLTRANSFERASE INCREASED [None]
  - INTERNATIONAL NORMALISED RATIO INCREASED [None]
  - MULTI-ORGAN FAILURE [None]
  - NO THERAPEUTIC RESPONSE [None]
  - PLATELET COUNT DECREASED [None]
